FAERS Safety Report 14958416 (Version 1)
Quarter: 2018Q2

REPORT INFORMATION
  Report Type: Spontaneous
  Country: PT (occurrence: PT)
  Receive Date: 20180531
  Receipt Date: 20180531
  Transmission Date: 20180711
  Serious: Yes (Hospitalization)
  Sender: FDA-Public Use
  Company Number: PT-AUROBINDO-AUR-APL-2018-028430

PATIENT
  Age: 5 Year

DRUGS (1)
  1. AMOXICILLIN. [Suspect]
     Active Substance: AMOXICILLIN
     Indication: PRODUCT USED FOR UNKNOWN INDICATION
     Dosage: 50 MILLIGRAM/KILOGRAM, DAILY
     Route: 065

REACTIONS (4)
  - Abdominal pain [Unknown]
  - Pyrexia [Unknown]
  - Infectious mononucleosis [Unknown]
  - Asthenia [Unknown]
